FAERS Safety Report 9047424 (Version 2)
Quarter: 2013Q1

REPORT INFORMATION
  Report Type: Spontaneous
  Country: JP (occurrence: JP)
  Receive Date: 20130131
  Receipt Date: 20130314
  Transmission Date: 20140127
  Serious: Yes (Other)
  Sender: FDA-Public Use
  Company Number: JP-ASTRAZENECA-2013SE02847

PATIENT
  Sex: Female

DRUGS (2)
  1. OMEPRAL [Suspect]
     Route: 048
  2. DOGMATYL [Suspect]
     Dosage: DOSE UNKNOWN
     Route: 065

REACTIONS (2)
  - Amenorrhoea [Recovered/Resolved]
  - Hyperprolactinaemia [Recovered/Resolved]
